FAERS Safety Report 8943349 (Version 2)
Quarter: 2014Q1

REPORT INFORMATION
  Report Type: Spontaneous
  Country: BR (occurrence: BR)
  Receive Date: 20121204
  Receipt Date: 20140319
  Transmission Date: 20141002
  Serious: Yes (Other)
  Sender: FDA-Public Use
  Company Number: BR-AMGEN-BRASP2012076977

PATIENT
  Age: 75 Year
  Sex: Female
  Weight: 62 kg

DRUGS (10)
  1. ENBREL [Suspect]
     Indication: RHEUMATOID ARTHRITIS
     Dosage: UNK
     Route: 058
     Dates: start: 201205, end: 2012
  2. ENBREL [Suspect]
     Dosage: 50 MG, EVERY 15 DAYS
     Route: 058
     Dates: start: 2012, end: 201209
  3. ENBREL [Suspect]
     Dosage: UNK
     Route: 058
     Dates: start: 2012, end: 201210
  4. ENBREL [Suspect]
     Dosage: 50 MG, EVERY 22 DAYS
     Route: 065
  5. NPH INSULIN [Concomitant]
     Dosage: UNK
  6. INSULIN, REGULAR [Concomitant]
     Dosage: UNK
  7. METFORMIN [Concomitant]
     Dosage: UNK
  8. TECNOMET                           /00113801/ [Concomitant]
     Dosage: UNK
  9. FOLIC ACID [Concomitant]
     Dosage: UNK
  10. ATORVASTATIN [Concomitant]
     Dosage: UNK

REACTIONS (5)
  - Rheumatoid arthritis [Unknown]
  - Local swelling [Unknown]
  - Trigger finger [Not Recovered/Not Resolved]
  - Pneumonia [Unknown]
  - Pain in extremity [Not Recovered/Not Resolved]
